FAERS Safety Report 19677225 (Version 5)
Quarter: 2021Q3

REPORT INFORMATION
  Report Type: Report from Study
  Country: JP (occurrence: JP)
  Receive Date: 20210809
  Receipt Date: 20210923
  Transmission Date: 20211014
  Serious: Yes (Hospitalization, Other)
  Sender: FDA-Public Use
  Company Number: JP-BRISTOL-MYERS SQUIBB COMPANY-BMS-2021-077966

PATIENT
  Age: 72 Year
  Sex: Female
  Weight: 50.8 kg

DRUGS (15)
  1. INDOMETACIN [Concomitant]
     Active Substance: INDOMETHACIN
     Indication: ARTHRALGIA
     Dosage: OINTMENT, CREAM? PRN
     Route: 061
     Dates: start: 20210629
  2. DICLOFENAC SODIUM. [Concomitant]
     Active Substance: DICLOFENAC SODIUM
     Indication: ARTHRALGIA
     Dosage: OINTMENT, CREAM? PRN
     Route: 061
     Dates: start: 20210629
  3. METOCLOPRAMIDE. [Concomitant]
     Active Substance: METOCLOPRAMIDE
     Indication: PROPHYLAXIS OF NAUSEA AND VOMITING
     Dosage: 5 MILLIGRAM, QD
     Route: 048
     Dates: start: 20210709
  4. TEGAFUR,GIMERACIL,OTERACIL POTASSIUM [Suspect]
     Active Substance: GIMERACIL\OTERACIL\TEGAFUR
     Indication: PANCREATIC CARCINOMA
     Dosage: 100 MG/DAY, ORAL ONLY ON THE DAY OF RADIATION IRRADIATION
     Route: 048
     Dates: start: 20210629, end: 20210803
  5. FEBURIC [Concomitant]
     Active Substance: FEBUXOSTAT
     Indication: HYPERLIPIDAEMIA
     Dosage: 10 MILLIGRAM, QD
     Route: 048
  6. CALONAL [Concomitant]
     Active Substance: ACETAMINOPHEN
     Indication: CANCER PAIN
     Dosage: 200 MILLIGRAM, PRN
  7. OPALMON [Concomitant]
     Active Substance: LIMAPROST
     Indication: SPINAL STENOSIS
     Dosage: 10 MICROGRAM, Q12H
     Route: 048
  8. TELMISARTAN. [Concomitant]
     Active Substance: TELMISARTAN
     Indication: HYPERTENSION
     Dosage: 20 MILLIGRAM, QD
     Route: 048
  9. OXINORM [OXYCODONE HYDROCHLORIDE] [Concomitant]
     Active Substance: OXYCODONE HYDROCHLORIDE
     Indication: CANCER PAIN
     Dosage: 2.5 MILLIGRAM?PRN (POWDER (EXCEPT?DPO))
     Route: 048
     Dates: start: 20210705
  10. FENTOS [Concomitant]
     Active Substance: FENTANYL
     Indication: CANCER PAIN
     Dosage: 1.5 MILLIGRAM?TAPE (INCLUDING POULTICE)
     Route: 062
     Dates: start: 20210720
  11. TEGAFUR,GIMERACIL,OTERACIL POTASSIUM [Suspect]
     Active Substance: GIMERACIL\OTERACIL\TEGAFUR
     Dosage: 100 MG/DAY, ORAL ONLY ON THE DAY OF RADIATION IRRADIATION
     Route: 048
     Dates: start: 20210816, end: 20210820
  12. SPIRIVA [Concomitant]
     Active Substance: TIOTROPIUM BROMIDE MONOHYDRATE
     Indication: CHRONIC OBSTRUCTIVE PULMONARY DISEASE
     Dosage: 2 DF, EVERYDAY
     Route: 055
  13. TAKECAB [Concomitant]
     Active Substance: VONOPRAZAN FUMARATE
     Indication: GASTRIC ULCER
     Dosage: 20 MILLIGRAM, QD
     Route: 048
  14. LOXOPROFEN [Concomitant]
     Active Substance: LOXOPROFEN
     Indication: CANCER PAIN
     Dosage: 200 MILLIGRAM, PRN
     Route: 048
     Dates: start: 20210629
  15. ABSTRAL [Concomitant]
     Active Substance: FENTANYL CITRATE
     Indication: CANCER PAIN
     Dosage: 100 MICROGRAM, PRN
     Route: 048
     Dates: start: 20210720

REACTIONS (2)
  - Liver abscess [Recovered/Resolved]
  - Decreased appetite [Recovered/Resolved]

NARRATIVE: CASE EVENT DATE: 20210803
